FAERS Safety Report 15342441 (Version 2)
Quarter: 2018Q4

REPORT INFORMATION
  Report Type: Spontaneous
  Country: US (occurrence: US)
  Receive Date: 20180902
  Receipt Date: 20181123
  Transmission Date: 20190204
  Serious: No
  Sender: FDA-Public Use
  Company Number: US-BIOGEN-2018BI00627669

PATIENT
  Sex: Female

DRUGS (1)
  1. TYSABRI [Suspect]
     Active Substance: NATALIZUMAB
     Indication: MULTIPLE SCLEROSIS
     Route: 065
     Dates: start: 20180503

REACTIONS (1)
  - Bacterial infection [Not Recovered/Not Resolved]
